FAERS Safety Report 17073741 (Version 1)
Quarter: 2019Q4

REPORT INFORMATION
  Report Type: Report from Study
  Country: FR (occurrence: FR)
  Receive Date: 20191126
  Receipt Date: 20191126
  Transmission Date: 20200122
  Serious: Yes (Hospitalization)
  Sender: FDA-Public Use
  Company Number: FR-ROCHE-2476840

PATIENT
  Age: 56 Year
  Sex: Male

DRUGS (2)
  1. BCG VACCINE [Suspect]
     Active Substance: BCG VACCINE
     Indication: BLADDER CANCER
     Dosage: CYCLE 1 DATE OF LAST DOSE OF ADMINISTERED ON 17/OCT/2019.
     Route: 065
     Dates: start: 20190912
  2. ATEZOLIZUMAB. [Suspect]
     Active Substance: ATEZOLIZUMAB
     Indication: BLADDER CANCER
     Dosage: CYCLE 3, DATE OF LAST DOSE OF ADMINISTERED ON 24/OCT/2019
     Route: 042
     Dates: start: 20190912

REACTIONS (1)
  - Pancreatitis [Not Recovered/Not Resolved]
